FAERS Safety Report 5134258-0 (Version None)
Quarter: 2006Q4

REPORT INFORMATION
  Report Type: 
  Country: None (occurrence: None)
  Receive Date: 20061019
  Receipt Date: 20061009
  Transmission Date: 20070319
  Serious: Yes (Hospitalization)
  Sender: FDA-Public Use
  Company Number: FR200610001487

PATIENT
  Age: 67 Year
  Sex: Male

DRUGS (3)
  1. ZYPREXA [Suspect]
     Indication: BIPOLAR DISORDER
     Dosage: 5 MG, DAILY (1/D), ORAL
     Route: 048
     Dates: start: 20010101, end: 20060901
  2. EFFEXOR [Concomitant]
  3. LITHIUM CARBONATE [Concomitant]

REACTIONS (10)
  - CEREBRAL VENTRICLE DILATATION [None]
  - CEREBROVASCULAR ACCIDENT [None]
  - DEMENTIA [None]
  - DYSARTHRIA [None]
  - DYSPHAGIA [None]
  - DYSPHONIA [None]
  - EXTRAPYRAMIDAL DISORDER [None]
  - LACUNAR INFARCTION [None]
  - MICROGRAPHIA [None]
  - TREMOR [None]
